FAERS Safety Report 6525714-9 (Version None)
Quarter: 2010Q1

REPORT INFORMATION
  Report Type: 
  Country: None (occurrence: None)
  Receive Date: 20100104
  Receipt Date: 20091222
  Transmission Date: 20100710
  Serious: Yes (Hospitalization, Other)
  Sender: FDA-Public Use
  Company Number: US-JNJCH-2009032954

PATIENT
  Age: 78 Year
  Sex: Female
  Weight: 67.6 kg

DRUGS (1)
  1. ROGAINE [Suspect]
     Indication: ALOPECIA
     Dosage: TEXT:AS DIRECTED - ONCE ABOUT EVERY OTHER DAY
     Route: 061
     Dates: start: 20091114, end: 20091213

REACTIONS (4)
  - APPLICATION SITE INFLAMMATION [None]
  - FATIGUE [None]
  - SYNCOPE [None]
  - WRONG DRUG ADMINISTERED [None]
